FAERS Safety Report 6708656-5 (Version None)
Quarter: 2010Q2

REPORT INFORMATION
  Report Type: 
  Country: None (occurrence: None)
  Receive Date: 20100503
  Receipt Date: 20100422
  Transmission Date: 20101027
  Serious: Yes (Other)
  Sender: FDA-Public Use
  Company Number: US-BAXTER-2010BH009940

PATIENT
  Age: 45 Year
  Sex: Male

DRUGS (3)
  1. DIANEAL [Suspect]
     Indication: PERITONEAL DIALYSIS
     Route: 033
  2. DIANEAL [Suspect]
     Indication: PERITONEAL DIALYSIS
     Route: 033
  3. REGLAN [Concomitant]
     Indication: NAUSEA
     Route: 048

REACTIONS (3)
  - ABDOMINAL DISTENSION [None]
  - INFECTION [None]
  - VOMITING [None]
